FAERS Safety Report 9037083 (Version 2)
Quarter: 2013Q1

REPORT INFORMATION
  Report Type: Spontaneous
  Country: US (occurrence: None)
  Receive Date: 20130115
  Receipt Date: 20130311
  Transmission Date: 20140127
  Serious: Yes (Other)
  Sender: FDA-Public Use
  Company Number: 2012P1068207

PATIENT
  Age: 19 Year
  Sex: Male
  Weight: 79.38 kg

DRUGS (1)
  1. MYORISAN 40 MG [Suspect]
     Indication: ACNE CYSTIC
     Route: 048
     Dates: start: 201211, end: 201211

REACTIONS (8)
  - Swelling face [None]
  - Headache [None]
  - Eye swelling [None]
  - Cyst [None]
  - Aggression [None]
  - Anxiety [None]
  - Fear of eating [None]
  - Product substitution issue [None]
